FAERS Safety Report 15537617 (Version 2)
Quarter: 2018Q4

REPORT INFORMATION
  Report Type: Spontaneous
  Country: JP (occurrence: JP)
  Receive Date: 20181022
  Receipt Date: 20181211
  Transmission Date: 20190205
  Serious: Yes (Other)
  Sender: FDA-Public Use
  Company Number: JP-BAYER-2018-191666

PATIENT
  Age: 71 Year
  Sex: Male

DRUGS (5)
  1. MAINTATE [Suspect]
     Active Substance: BISOPROLOL FUMARATE
  2. NEXIUM [ESOMEPRAZOLE MAGNESIUM] [Concomitant]
  3. BAYASPIRIN 100 MG [Suspect]
     Active Substance: ASPIRIN
     Indication: ANGINA PECTORIS
     Dosage: 100 MG, QD
     Route: 048
  4. APIXABAN [Concomitant]
     Active Substance: APIXABAN
  5. CLOPIDOGREL [Concomitant]
     Active Substance: CLOPIDOGREL BISULFATE

REACTIONS (3)
  - Sinus arrest [None]
  - Sinus node dysfunction [None]
  - Dizziness [Recovered/Resolved]

NARRATIVE: CASE EVENT DATE: 201712
